FAERS Safety Report 10005546 (Version 1)
Quarter: 2014Q1

REPORT INFORMATION
  Report Type: Report from Study
  Country: AU (occurrence: AU)
  Receive Date: 20140313
  Receipt Date: 20140313
  Transmission Date: 20141002
  Serious: Yes (Hospitalization)
  Sender: FDA-Public Use
  Company Number: AU-ROCHE-1362398

PATIENT
  Age: 67 Year
  Sex: Female

DRUGS (1)
  1. ACTEMRA [Suspect]
     Indication: RHEUMATOID ARTHRITIS
     Route: 042
     Dates: start: 20140108

REACTIONS (4)
  - Rectal haemorrhage [Recovering/Resolving]
  - Blood potassium decreased [Unknown]
  - Diverticulitis [Unknown]
  - Haemorrhoids [Unknown]
